FAERS Safety Report 9519708 (Version 1)
Quarter: 2013Q3

REPORT INFORMATION
  Report Type: Spontaneous
  Country: US (occurrence: None)
  Receive Date: 20130911
  Receipt Date: 20130911
  Transmission Date: 20140515
  Serious: Yes (Other)
  Sender: FDA-Public Use
  Company Number: None

PATIENT
  Sex: Female
  Weight: 56.7 kg

DRUGS (3)
  1. PHENYLEPHRINE [Suspect]
     Indication: LABOUR COMPLICATION
     Route: 042
  2. PHENYLEPHRINE [Suspect]
     Indication: CARDIOVASCULAR DISORDER
     Route: 042
  3. LABETALOL [Concomitant]

REACTIONS (3)
  - Headache [None]
  - Sensory disturbance [None]
  - Exposure during pregnancy [None]
